FAERS Safety Report 4507320-0 (Version None)
Quarter: 2004Q4

REPORT INFORMATION
  Report Type: 
  Country: None (occurrence: None)
  Receive Date: 20041118
  Receipt Date: 20041102
  Transmission Date: 20050328
  Serious: Yes (Hospitalization)
  Sender: FDA-Public Use
  Company Number: 207213

PATIENT
  Age: 55 Year
  Sex: Male
  Weight: 111.1313 kg

DRUGS (6)
  1. AVONEX [Suspect]
     Indication: MULTIPLE SCLEROSIS
     Dosage: 30 MCG QW IM
     Route: 030
     Dates: start: 20011101, end: 20030801
  2. PEPCID [Concomitant]
  3. ZANAFLEX [Concomitant]
  4. GLUCOTROL [Concomitant]
  5. INFLUENZA VACCINE [Concomitant]
  6. PNEUMOVAX 23 [Concomitant]

REACTIONS (6)
  - BLOOD CHOLESTEROL INCREASED [None]
  - CONDITION AGGRAVATED [None]
  - MULTIPLE SCLEROSIS [None]
  - POLLAKIURIA [None]
  - PSORIASIS [None]
  - RASH [None]
